FAERS Safety Report 14116776 (Version 1)
Quarter: 2017Q4

REPORT INFORMATION
  Report Type: Spontaneous
  Country: FR (occurrence: FR)
  Receive Date: 20171023
  Receipt Date: 20171023
  Transmission Date: 20180321
  Serious: Yes (Other)
  Sender: FDA-Public Use
  Company Number: FR-TEVA-817640ROM

PATIENT
  Age: 79 Year
  Sex: Female

DRUGS (2)
  1. CELECOXIB ARROW LAB 200MG [Suspect]
     Active Substance: CELECOXIB
     Indication: SPINAL OSTEOARTHRITIS
     Dosage: 200 MILLIGRAM DAILY;
     Route: 048
     Dates: start: 20170925, end: 20170928
  2. CORTANCYL [Concomitant]
     Active Substance: PREDNISONE
     Indication: SPINAL OSTEOARTHRITIS
     Route: 065

REACTIONS (5)
  - Dizziness [Recovered/Resolved]
  - Rhinorrhoea [Recovered/Resolved]
  - Bone pain [Recovered/Resolved]
  - Flatulence [Recovered/Resolved]
  - Haematochezia [Recovered/Resolved]

NARRATIVE: CASE EVENT DATE: 20170926
